FAERS Safety Report 6027237-2 (Version None)
Quarter: 2009Q1

REPORT INFORMATION
  Report Type: 
  Country: None (occurrence: None)
  Receive Date: 20090105
  Receipt Date: 20081229
  Transmission Date: 20090719
  Serious: Yes (Other)
  Sender: FDA-Public Use
  Company Number: US-ABBOTT-08P-163-0495044-00

PATIENT
  Sex: Female

DRUGS (5)
  1. HUMIRA [Suspect]
     Indication: PSORIATIC ARTHROPATHY
     Route: 058
     Dates: start: 20070101, end: 20080901
  2. HUMIRA [Suspect]
     Route: 058
     Dates: start: 20080101
  3. PLAQUENIL [Concomitant]
     Indication: PSORIATIC ARTHROPATHY
     Dates: start: 19930101
  4. FOLIC ACID [Concomitant]
     Indication: PSORIATIC ARTHROPATHY
  5. USANA VITAMINS [Concomitant]
     Indication: DRUG USE FOR UNKNOWN INDICATION
     Dosage: 1 IN 24 HRS DAILY
     Route: 048

REACTIONS (3)
  - FALL [None]
  - JOINT DISLOCATION [None]
  - MUSCULOSKELETAL PAIN [None]
